FAERS Safety Report 21049323 (Version 1)
Quarter: 2022Q3

REPORT INFORMATION
  Report Type: Report from Study
  Country: US (occurrence: US)
  Receive Date: 20220706
  Receipt Date: 20220706
  Transmission Date: 20221027
  Serious: Yes (Hospitalization)
  Sender: FDA-Public Use
  Company Number: US-JNJFOC-20220656269

PATIENT
  Age: 68 Year
  Sex: Male
  Weight: 138.2 kg

DRUGS (27)
  1. ERDAFITINIB [Suspect]
     Active Substance: ERDAFITINIB
     Indication: Bladder cancer
     Route: 048
     Dates: start: 20220325, end: 20220502
  2. ERDAFITINIB [Suspect]
     Active Substance: ERDAFITINIB
     Route: 048
     Dates: start: 20220520
  3. EZETIMIBE [Concomitant]
     Active Substance: EZETIMIBE
     Indication: Hyperlipidaemia
     Route: 065
     Dates: start: 20020101
  4. ASPIRIN [Concomitant]
     Active Substance: ASPIRIN
     Indication: Pain
     Route: 065
     Dates: start: 20030101
  5. ASPIRIN [Concomitant]
     Active Substance: ASPIRIN
     Indication: Dyslipidaemia
     Route: 065
  6. CALCIUM CARBONATE [Concomitant]
     Active Substance: CALCIUM CARBONATE
     Indication: Routine health maintenance
     Route: 065
     Dates: start: 20120101
  7. METFORMIN [Concomitant]
     Active Substance: METFORMIN HYDROCHLORIDE
     Indication: Diabetes mellitus
     Route: 065
     Dates: start: 20120101
  8. NIACIN [Concomitant]
     Active Substance: NIACIN
     Indication: Hypertension
     Route: 065
     Dates: start: 20120101
  9. LISINORPIL (ZESTRIL) [Concomitant]
     Indication: Hypertension
     Route: 065
     Dates: start: 20120101, end: 20220617
  10. METOPROLOL [Concomitant]
     Active Substance: METOPROLOL
     Indication: Hypertension
     Route: 065
     Dates: start: 20120101, end: 20220509
  11. PANTOPRAZOLE [Concomitant]
     Active Substance: PANTOPRAZOLE
     Indication: Dyspepsia
     Route: 065
     Dates: start: 2018, end: 20220509
  12. TAMSULOSIN [Concomitant]
     Active Substance: TAMSULOSIN
     Indication: Prostatomegaly
     Route: 065
     Dates: start: 20180101, end: 20220509
  13. CHOLECALCIFEROL (VITAMIN D) [Concomitant]
     Indication: Vitamin supplementation
     Route: 065
     Dates: start: 20190101
  14. DULOXETINE [Concomitant]
     Active Substance: DULOXETINE
     Indication: Pain
     Route: 065
     Dates: start: 20190101
  15. SILDENAFIL [Concomitant]
     Active Substance: SILDENAFIL
     Indication: Erectile dysfunction
     Route: 065
     Dates: start: 20180101, end: 20220509
  16. FINASTERIDE [Concomitant]
     Active Substance: FINASTERIDE
     Indication: Prostatomegaly
     Route: 065
     Dates: start: 20200101
  17. INSULIN ASPART U [Concomitant]
     Indication: Diabetes mellitus
     Route: 065
     Dates: start: 20200101
  18. INSULIN DETERMIN U (LEVEMIR) [Concomitant]
     Indication: Diabetes mellitus
     Route: 065
     Dates: start: 20200101
  19. DECADRON [Concomitant]
     Active Substance: DEXAMETHASONE
     Indication: Stomatitis
     Route: 065
     Dates: start: 20220502
  20. BACTROBAN [Concomitant]
     Active Substance: MUPIROCIN\MUPIROCIN CALCIUM
     Indication: Nasal mucosal disorder
     Route: 065
     Dates: start: 20220505
  21. CHOLECALCIFEROL [Concomitant]
     Active Substance: CHOLECALCIFEROL
     Indication: Vitamin D deficiency
     Route: 065
     Dates: start: 2019, end: 20220617
  22. OXYCODONE [Concomitant]
     Active Substance: OXYCODONE
     Indication: Transurethral bladder resection
     Route: 065
     Dates: start: 20220304
  23. PHENAZOPYRIDINE [Concomitant]
     Active Substance: PHENAZOPYRIDINE
     Indication: Transurethral bladder resection
     Route: 065
     Dates: start: 20220304, end: 20220617
  24. PHENAZOPYRIDINE [Concomitant]
     Active Substance: PHENAZOPYRIDINE
     Indication: Urinary retention
  25. ORAJEL [Concomitant]
     Active Substance: ALLANTOIN\BENZOCAINE\CAMPHOR (NATURAL)\DIMETHICONE\MENTHOL
     Indication: Stomatitis
     Route: 065
     Dates: start: 20220428
  26. MAGOX [Concomitant]
     Indication: Nutritional supplementation
     Route: 065
     Dates: start: 20220509
  27. IRON [FERROUS SULFATE] [Concomitant]
     Indication: Nutritional supplementation
     Route: 065
     Dates: start: 20220509

REACTIONS (1)
  - Syncope [Recovered/Resolved]

NARRATIVE: CASE EVENT DATE: 20220507
